FAERS Safety Report 5553588-1 (Version None)
Quarter: 2007Q4

REPORT INFORMATION
  Report Type: 
  Country: None (occurrence: None)
  Receive Date: 20071213
  Receipt Date: 20071128
  Transmission Date: 20080405
  Serious: No
  Sender: FDA-Public Use
  Company Number: US-BAYER-200715748NA

PATIENT
  Age: 42 Year
  Sex: Female
  Weight: 64 kg

DRUGS (4)
  1. MAGNEVIST [Suspect]
     Indication: NUCLEAR MAGNETIC RESONANCE IMAGING BRAIN
     Dosage: TOTAL DAILY DOSE: 13 ML  UNIT DOSE: 13 ML
     Route: 042
     Dates: start: 20071127, end: 20071127
  2. ASPIRIN [Concomitant]
     Dosage: AS USED: 81 MG  UNIT DOSE: 81 MG
  3. PRILOSEC [Concomitant]
  4. FISH OIL [Concomitant]

REACTIONS (2)
  - PRURITUS [None]
  - URTICARIA [None]
